FAERS Safety Report 7236548-4 (Version None)
Quarter: 2011Q1

REPORT INFORMATION
  Report Type: 
  Country: None (occurrence: None)
  Receive Date: 20110120
  Receipt Date: 20101020
  Transmission Date: 20110831
  Serious: Yes (Disabling, Other)
  Sender: FDA-Public Use
  Company Number: PK-PURDUE-USA-2010-0062581

PATIENT
  Age: 62 Year
  Sex: Male

DRUGS (3)
  1. TRAMADOL (SIMILAR TO NDA 21-745) [Suspect]
     Indication: PAIN IN EXTREMITY
  2. MORPHINE SULFATE [Suspect]
  3. CELECOXIB [Suspect]
     Indication: PAIN IN EXTREMITY

REACTIONS (3)
  - WALKING DISABILITY [None]
  - PAIN [None]
  - THERAPEUTIC RESPONSE DECREASED [None]
